FAERS Safety Report 21106965 (Version 1)
Quarter: 2022Q3

REPORT INFORMATION
  Report Type: Spontaneous
  Country: US (occurrence: None)
  Receive Date: 20220720
  Receipt Date: 20220720
  Transmission Date: 20221027
  Serious: No
  Sender: FDA-Public Use
  Company Number: None

PATIENT
  Age: 67 Year
  Sex: Female
  Weight: 610.54 kg

DRUGS (10)
  1. KISQALI [Suspect]
     Active Substance: RIBOCICLIB
     Indication: Bone cancer
     Dosage: 400MG 3W, 1W OFF ORAL?
     Route: 048
  2. ATORVASTATIN [Concomitant]
     Active Substance: ATORVASTATIN
  3. AZELASTINE HYDROCHLORIDE [Suspect]
     Active Substance: AZELASTINE HYDROCHLORIDE
  4. FASLODEX [Concomitant]
     Active Substance: FULVESTRANT
  5. FISH OIL [Concomitant]
     Active Substance: FISH OIL
  6. FLONASE ALLERGY RELIEF [Concomitant]
     Active Substance: FLUTICASONE PROPIONATE
  7. LEXAPRO [Concomitant]
     Active Substance: ESCITALOPRAM OXALATE
  8. METOPROLOL TARTRATE [Concomitant]
     Active Substance: METOPROLOL TARTRATE
  9. VITAMIN D [Concomitant]
     Active Substance: VITAMIN D NOS
  10. XGEVA [Concomitant]
     Active Substance: DENOSUMAB

REACTIONS (1)
  - SARS-CoV-2 test positive [None]
